FAERS Safety Report 7899040-X (Version None)
Quarter: 2011Q4

REPORT INFORMATION
  Report Type: 
  Country: None (occurrence: None)
  Receive Date: 20111107
  Receipt Date: 20111024
  Transmission Date: 20120403
  Serious: Yes (Hospitalization)
  Sender: FDA-Public Use
  Company Number: FR-ROCHE-1006011

PATIENT
  Sex: Female

DRUGS (6)
  1. PREDNISONE [Concomitant]
  2. GLYBURIDE [Concomitant]
  3. XOLAIR [Suspect]
     Indication: ASTHMA
     Dosage: DAILY
     Route: 058
     Dates: start: 20110822
  4. METFORMIN HCL [Concomitant]
     Dosage: DOSE: 2000
  5. LOSARTAN POTASSIUM AND HYDROCHLOROTHIAZIDE [Concomitant]
     Dosage: 100/25 MG
  6. ATORVASTATIN [Concomitant]

REACTIONS (3)
  - ASTHMATIC CRISIS [None]
  - SINUS TACHYCARDIA [None]
  - DIAPHRAGMATIC DISORDER [None]
